FAERS Safety Report 6313961-0 (Version None)
Quarter: 2009Q3

REPORT INFORMATION
  Report Type: 
  Country: None (occurrence: None)
  Receive Date: 20090818
  Receipt Date: 20090806
  Transmission Date: 20100115
  Serious: Yes (Hospitalization, Other)
  Sender: FDA-Public Use
  Company Number: PHHY2009NZ33251

PATIENT
  Sex: Male

DRUGS (2)
  1. CLOZARIL [Suspect]
     Indication: SCHIZOPHRENIA
     Dosage: UNK
     Dates: start: 19951002
  2. CLOZAPINE [Suspect]
     Indication: SCHIZOPHRENIA

REACTIONS (16)
  - BLOOD CHOLESTEROL DECREASED [None]
  - BLOOD CREATINE PHOSPHOKINASE [None]
  - BLOOD GLUCOSE INCREASED [None]
  - CONSTIPATION [None]
  - GENERAL PHYSICAL HEALTH DETERIORATION [None]
  - HIGH DENSITY LIPOPROTEIN DECREASED [None]
  - LYMPHOCYTE COUNT DECREASED [None]
  - LYMPHOCYTE COUNT INCREASED [None]
  - MEAN CELL HAEMOGLOBIN [None]
  - MONOCYTE COUNT DECREASED [None]
  - NEUTROPHIL COUNT DECREASED [None]
  - PLATELET COUNT DECREASED [None]
  - PSYCHOTIC DISORDER [None]
  - RED CELL DISTRIBUTION WIDTH INCREASED [None]
  - WHITE BLOOD CELL COUNT DECREASED [None]
  - WHITE BLOOD CELL COUNT INCREASED [None]
